FAERS Safety Report 24029778 (Version 8)
Quarter: 2024Q3

REPORT INFORMATION
  Report Type: Spontaneous
  Country: IN (occurrence: IN)
  Receive Date: 20240628
  Receipt Date: 20240903
  Transmission Date: 20241017
  Serious: Yes (Other)
  Sender: PFIZER
  Company Number: IN-PFIZER INC-PV202400079803

PATIENT
  Age: 52 Year
  Sex: Male
  Weight: 75.2 kg

DRUGS (7)
  1. LORLATINIB [Suspect]
     Active Substance: LORLATINIB
     Indication: Lung cancer metastatic
     Dosage: 100 MG, OD
     Route: 048
     Dates: start: 20240523
  2. LORLATINIB [Suspect]
     Active Substance: LORLATINIB
     Dosage: 100 MG, OD
     Route: 048
     Dates: end: 20240621
  3. LORLATINIB [Suspect]
     Active Substance: LORLATINIB
     Dosage: 75 MG, 1X/DAY
     Route: 048
     Dates: start: 20240622
  4. LEVOTHYROXINE [Concomitant]
     Active Substance: LEVOTHYROXINE\LEVOTHYROXINE SODIUM
     Indication: Thyroid disorder
     Dosage: 100 UG, 1X/DAY
  5. LEVETIRACETAM [Concomitant]
     Active Substance: LEVETIRACETAM
     Indication: Seizure
     Dosage: UNK, 2X/DAY
  6. DECMAX [Concomitant]
     Indication: Seizure
     Dosage: 4 MG
  7. REPACE [Concomitant]
     Indication: Hypertension
     Dosage: 25 MG, 1X/DAY

REACTIONS (33)
  - Hemiparesis [Recovering/Resolving]
  - Disease recurrence [Recovering/Resolving]
  - Hallucination [Not Recovered/Not Resolved]
  - Headache [Recovering/Resolving]
  - Abnormal dreams [Not Recovered/Not Resolved]
  - Blood cholesterol increased [Not Recovered/Not Resolved]
  - Platelet count decreased [Unknown]
  - Blood glucose increased [Not Recovered/Not Resolved]
  - Fatigue [Recovered/Resolved]
  - Weight abnormal [Recovering/Resolving]
  - Confusional state [Recovering/Resolving]
  - Agitation [Recovering/Resolving]
  - Anxiety [Recovering/Resolving]
  - Haemoglobin decreased [Not Recovered/Not Resolved]
  - Ageusia [Not Recovered/Not Resolved]
  - Dyspepsia [Recovering/Resolving]
  - Eructation [Not Recovered/Not Resolved]
  - Arthralgia [Recovering/Resolving]
  - Sleep disorder [Recovering/Resolving]
  - Memory impairment [Recovering/Resolving]
  - Depressed mood [Not Recovered/Not Resolved]
  - Frustration tolerance decreased [Not Recovered/Not Resolved]
  - Irritability [Not Recovered/Not Resolved]
  - Lipids increased [Not Recovered/Not Resolved]
  - Disturbance in attention [Recovering/Resolving]
  - Glycosylated haemoglobin increased [Not Recovered/Not Resolved]
  - Gamma-glutamyltransferase increased [Not Recovered/Not Resolved]
  - Renal function test abnormal [Not Recovered/Not Resolved]
  - Tri-iodothyronine decreased [Not Recovered/Not Resolved]
  - Full blood count decreased [Not Recovered/Not Resolved]
  - Blood pressure increased [Unknown]
  - Gait disturbance [Unknown]
  - Neoplasm progression [Not Recovered/Not Resolved]

NARRATIVE: CASE EVENT DATE: 20240101
